FAERS Safety Report 7327141-3 (Version None)
Quarter: 2011Q1

REPORT INFORMATION
  Report Type: 
  Country: None (occurrence: None)
  Receive Date: 20110302
  Receipt Date: 20110227
  Transmission Date: 20110831
  Serious: Yes (Other)
  Sender: FDA-Public Use
  Company Number: US-PFIZER INC-2011042584

PATIENT
  Sex: Female

DRUGS (8)
  1. PRISTIQ [Suspect]
     Indication: ANXIETY
  2. PREVACID [Concomitant]
     Indication: ABDOMINAL DISCOMFORT
     Dosage: 30 MG, DAILY
  3. ZOLOFT [Suspect]
     Indication: DEPRESSION
     Dosage: 200 MG, DAILY
     Route: 048
  4. ZOLOFT [Suspect]
     Indication: ANXIETY
  5. PRISTIQ [Suspect]
     Indication: DEPRESSION
     Dosage: 50 MG, DAILY
     Route: 048
  6. ALDACTONE [Concomitant]
     Indication: HYPERTENSION
     Dosage: 50 MG, 1X/DAY
  7. FIORICET [Concomitant]
     Indication: MIGRAINE
     Dosage: UNK
  8. TENORMIN [Concomitant]
     Dosage: 50 MG, DAILY IN THE MORNING

REACTIONS (11)
  - PANIC ATTACK [None]
  - CRYING [None]
  - INSOMNIA [None]
  - DRUG INEFFECTIVE [None]
  - PNEUMONIA [None]
  - ANXIETY [None]
  - HEADACHE [None]
  - DRY MOUTH [None]
  - DEPRESSION [None]
  - BRONCHITIS [None]
  - BLOOD PRESSURE INCREASED [None]
